FAERS Safety Report 5742851-7 (Version None)
Quarter: 2008Q2

REPORT INFORMATION
  Report Type: 
  Country: None (occurrence: None)
  Receive Date: 20080515
  Receipt Date: 20080515
  Transmission Date: 20081010
  Serious: Yes (Other)
  Sender: FDA-Public Use
  Company Number: None

PATIENT
  Age: 54 Year
  Sex: Male

DRUGS (2)
  1. DASATINIB [Suspect]
     Indication: CHRONIC MYELOID LEUKAEMIA
     Dosage: 70 MG BID PO
     Route: 048
     Dates: start: 20070122, end: 20071217
  2. DASATINIB [Suspect]
     Dosage: 50 MG BID PO
     Route: 048
     Dates: start: 20071217, end: 20080212

REACTIONS (1)
  - PLEURAL EFFUSION [None]
